FAERS Safety Report 6130990-0 (Version None)
Quarter: 2009Q1

REPORT INFORMATION
  Report Type: 
  Country: None (occurrence: None)
  Receive Date: 20090325
  Receipt Date: 20090310
  Transmission Date: 20090719
  Serious: Yes (Death)
  Sender: FDA-Public Use
  Company Number: US-PFIZER INC-2008003073

PATIENT
  Age: 52 Year
  Sex: Female

DRUGS (11)
  1. DOXEPIN HCL [Suspect]
  2. FENTANYL-25 [Suspect]
  3. AMOXICILLIN AND AMOXICILLIN TRIHYDRATE [Suspect]
  4. PREGABALIN [Suspect]
  5. ATORVASTATIN [Suspect]
  6. FLUOXETINE [Suspect]
  7. BUPROPION HCL [Suspect]
  8. METHOCARBAMOL [Suspect]
  9. OXYCODONE HCL [Suspect]
  10. TIZANIDINE HCL [Suspect]
  11. IBUPROFEN [Suspect]

REACTIONS (3)
  - CARDIAC ARREST [None]
  - DEATH [None]
  - RESPIRATORY ARREST [None]
